FAERS Safety Report 6633004-9 (Version None)
Quarter: 2010Q1

REPORT INFORMATION
  Report Type: 
  Country: None (occurrence: None)
  Receive Date: 20100312
  Receipt Date: 20100302
  Transmission Date: 20100710
  Serious: Yes (Hospitalization)
  Sender: FDA-Public Use
  Company Number: GB-ABBOTT-10P-167-0629814-00

PATIENT
  Sex: Female

DRUGS (3)
  1. HUMIRA [Suspect]
     Indication: CROHN'S DISEASE
     Route: 058
  2. HUMIRA [Suspect]
     Dosage: 80MG (BASELINE)/80MG (WEEK 2)
     Route: 058
  3. PREDNISONE [Concomitant]
     Indication: CROHN'S DISEASE

REACTIONS (1)
  - FACE OEDEMA [None]
